FAERS Safety Report 4318741-3 (Version None)
Quarter: 2004Q1

REPORT INFORMATION
  Report Type: 
  Country: None (occurrence: None)
  Receive Date: 20040315
  Receipt Date: 20040304
  Transmission Date: 20041129
  Serious: Yes (Hospitalization)
  Sender: FDA-Public Use
  Company Number: CA-JNJFOC-20031101554

PATIENT
  Age: 61 Year
  Sex: Male
  Weight: 100 kg

DRUGS (21)
  1. REMICADE [Suspect]
     Indication: RHEUMATOID ARTHRITIS
     Dosage: 300 MG, INTRAVENOUS
     Route: 042
     Dates: start: 20000323
  2. REMICADE [Suspect]
     Indication: RHEUMATOID ARTHRITIS
     Dosage: 300 MG, INTRAVENOUS
     Route: 042
     Dates: start: 20030909
  3. NOVASEN (ACETYLSALICYLIC ACID) [Concomitant]
  4. LOPRESSOR SR (METOPROLOL TARTRATE) [Concomitant]
  5. PREDNISONE [Concomitant]
  6. METHOTREXATE [Concomitant]
  7. NITRO SPRAY (ISOSORBIDE DINITRATE) [Concomitant]
  8. PANTOLOC (PANTOPRAZOLE) [Concomitant]
  9. NITRO-DUR (GLYCERYL TRINITRATE) PATCH [Concomitant]
  10. DIOVOL (DIOVOL) [Concomitant]
  11. VITAMIN D [Concomitant]
  12. OSCAL (CALCIUM CARBONATE) [Concomitant]
  13. PLAVIX [Concomitant]
  14. FOLIC ACID [Concomitant]
  15. NEXIUM [Concomitant]
  16. SENEKOT (SENNA FRUIT) [Concomitant]
  17. LIPITOR [Concomitant]
  18. ENTROPHEN (ACETYLSALICYLIC ACID) [Concomitant]
  19. CALCIUM (CALCIUM) [Concomitant]
  20. DIOVAN [Concomitant]
  21. ATIVAN [Concomitant]

REACTIONS (8)
  - ANGINA UNSTABLE [None]
  - CHEST PAIN [None]
  - DYSPNOEA [None]
  - DYSPNOEA EXERTIONAL [None]
  - HYPOPERFUSION [None]
  - MYOCARDIAL ISCHAEMIA [None]
  - ONYCHOMYCOSIS [None]
  - PAIN IN EXTREMITY [None]
